FAERS Safety Report 6122884-1 (Version None)
Quarter: 2009Q1

REPORT INFORMATION
  Report Type: 
  Country: None (occurrence: None)
  Receive Date: 20090318
  Receipt Date: 20080807
  Transmission Date: 20090719
  Serious: No
  Sender: FDA-Public Use
  Company Number: US-AMGEN-KDL300131

PATIENT
  Sex: Female

DRUGS (4)
  1. NEUPOGEN [Suspect]
     Indication: CHEMOTHERAPY
     Dates: start: 20080709, end: 20080711
  2. NEULASTA [Suspect]
     Dates: start: 20080718
  3. DOCETAXEL [Concomitant]
  4. CISPLATIN [Concomitant]

REACTIONS (3)
  - BONE PAIN [None]
  - DYSPNOEA [None]
  - FATIGUE [None]
